FAERS Safety Report 12230127 (Version 1)
Quarter: 2016Q1

REPORT INFORMATION
  Report Type: Spontaneous
  Country: US (occurrence: None)
  Receive Date: 20160331
  Receipt Date: 20160331
  Transmission Date: 20160526
  Serious: No
  Sender: FDA-Public Use
  Company Number: None

PATIENT
  Age: 62 Year
  Sex: Female

DRUGS (9)
  1. IBRANCE [Suspect]
     Active Substance: PALBOCICLIB
     Indication: CARCINOID TUMOUR
     Dosage: 125 MG QD1-21 THEN 7 OFF ORAL
     Route: 048
     Dates: start: 201511
  2. LETROZOLE. [Concomitant]
     Active Substance: LETROZOLE
  3. JUBLIA [Concomitant]
     Active Substance: EFINACONAZOLE
  4. ECONAZOLE [Concomitant]
     Active Substance: ECONAZOLE
  5. CLINDAMYCIN [Concomitant]
     Active Substance: CLINDAMYCIN\CLINDAMYCIN PHOSPHATE
  6. SYNTHROID [Concomitant]
     Active Substance: LEVOTHYROXINE SODIUM
  7. SMZ/TMP [Concomitant]
     Active Substance: SULFAMETHOXAZOLE\TRIMETHOPRIM
  8. OXYCODONE [Concomitant]
     Active Substance: OXYCODONE
  9. OXYCODONE AND ACETAMINOPHEN [Concomitant]
     Active Substance: ACETAMINOPHEN\OXYCODONE HYDROCHLORIDE

REACTIONS (1)
  - Rash [None]

NARRATIVE: CASE EVENT DATE: 201511
